FAERS Safety Report 22990478 (Version 2)
Quarter: 2023Q4

REPORT INFORMATION
  Report Type: Other
  Country: JP (occurrence: JP)
  Receive Date: 20230927
  Receipt Date: 20231006
  Transmission Date: 20240109
  Serious: Yes (Other)
  Sender: FDA-Public Use
  Company Number: JP-ALVOGEN-2023092301

PATIENT
  Age: 71 Year
  Sex: Female

DRUGS (6)
  1. METHOTREXATE [Suspect]
     Active Substance: METHOTREXATE
     Indication: Still^s disease
     Dosage: STARTING 2 WEEKS LATER AFTER STARTING PREDNISONE.
     Dates: start: 202203
  2. PREDNISONE [Suspect]
     Active Substance: PREDNISONE
     Indication: Still^s disease
     Dosage: 30MG/DAY?DECREASING DOSES TO 5 MG.
     Dates: start: 20220225
  3. PREDNISONE [Suspect]
     Active Substance: PREDNISONE
     Indication: Still^s disease
     Dosage: ADMINISTERED IN GRADUALLY DECREASING DOSES TO 5 MG
  4. TOCILIZUMAB [Suspect]
     Active Substance: TOCILIZUMAB
     Indication: Product used for unknown indication
     Dosage: EIGHT WEEKS LATER, BIWEEKLY AT 8 MG/KG
     Dates: start: 2022
  5. INSULIN NOS [Concomitant]
     Active Substance: INSULIN NOS
     Indication: Product used for unknown indication
  6. Nucleic acid  analogs [Concomitant]
     Indication: Hepatitis B

REACTIONS (4)
  - Immunodeficiency [Unknown]
  - Lymphoproliferative disorder [Recovering/Resolving]
  - Hepatic neoplasm [Recovering/Resolving]
  - Off label use [Unknown]
